FAERS Safety Report 8336010 (Version 4)
Quarter: 2014Q1

REPORT INFORMATION
  Report Type: Spontaneous
  Country: US (occurrence: US)
  Receive Date: 20120113
  Receipt Date: 20140207
  Transmission Date: 20141002
  Serious: Yes (Hospitalization, Other)
  Sender: FDA-Public Use
  Company Number: US-PFIZER INC-2012007679

PATIENT
  Age: 69 Year
  Sex: Male
  Weight: 68.03 kg

DRUGS (3)
  1. NEURONTIN [Suspect]
     Indication: CONVULSION
     Dosage: 3600 MG, 1X/DAY (6 X600MG)
     Route: 048
     Dates: start: 1995
  2. DILANTIN [Suspect]
     Indication: CONVULSION
     Dosage: 500 MG, 1X/DAY (5 X 100MG)
     Route: 048
     Dates: start: 1993
  3. LISINOPRIL [Concomitant]
     Indication: HYPERTENSION
     Dosage: 20 MG, 1X/DAY

REACTIONS (2)
  - Cardiac disorder [Recovered/Resolved]
  - Muscle strain [Recovered/Resolved]
